FAERS Safety Report 21777791 (Version 1)
Quarter: 2022Q4

REPORT INFORMATION
  Report Type: Spontaneous
  Country: BE (occurrence: BE)
  Receive Date: 20221226
  Receipt Date: 20221226
  Transmission Date: 20230112
  Serious: Yes (Hospitalization, Other)
  Sender: FDA-Public Use
  Company Number: BE-BRISTOL-MYERS SQUIBB COMPANY-2022-145132

PATIENT
  Age: 65 Year

DRUGS (3)
  1. PENICILLIN G [Suspect]
     Active Substance: PENICILLIN G
     Indication: Product used for unknown indication
     Dosage: UNK
     Route: 065
  2. YERVOY [Suspect]
     Active Substance: IPILIMUMAB
     Indication: Mesothelioma
     Dosage: UNK
     Route: 042
     Dates: start: 20221122
  3. OPDIVO [Suspect]
     Active Substance: NIVOLUMAB
     Indication: Mesothelioma
     Dosage: UNK
     Route: 042
     Dates: start: 20221122

REACTIONS (7)
  - Pulmonary oedema [Unknown]
  - Drug hypersensitivity [Unknown]
  - Rash pruritic [Unknown]
  - Palpitations [Unknown]
  - Vomiting [Unknown]
  - Abdominal discomfort [Unknown]
  - Diarrhoea [Unknown]

NARRATIVE: CASE EVENT DATE: 20221126
